FAERS Safety Report 17822480 (Version 4)
Quarter: 2020Q3

REPORT INFORMATION
  Report Type: Spontaneous
  Country: US (occurrence: US)
  Receive Date: 20200526
  Receipt Date: 20200715
  Transmission Date: 20201102
  Serious: Yes (Disabling)
  Sender: FDA-Public Use
  Company Number: US-CELLTRION INC.-2020US022566

PATIENT

DRUGS (3)
  1. INFLECTRA [Suspect]
     Active Substance: INFLIXIMAB-DYYB
     Indication: ARTHRITIS
     Dosage: STARTED INFLECTRA IN 2019
     Route: 065
     Dates: start: 2019
  2. INFLECTRA [Suspect]
     Active Substance: INFLIXIMAB-DYYB
     Indication: PRODUCT USED FOR UNKNOWN INDICATION
  3. INFLECTRA [Suspect]
     Active Substance: INFLIXIMAB-DYYB
     Indication: INFLAMMATION

REACTIONS (11)
  - Movement disorder [Unknown]
  - Disability [Unknown]
  - Swelling [Unknown]
  - Peripheral swelling [Recovering/Resolving]
  - General physical health deterioration [Unknown]
  - Product dose omission issue [Unknown]
  - Weight decreased [Unknown]
  - Condition aggravated [Unknown]
  - Insomnia [Unknown]
  - Loss of personal independence in daily activities [Unknown]
  - Pain in extremity [Recovering/Resolving]

NARRATIVE: CASE EVENT DATE: 20200505
